FAERS Safety Report 12043024 (Version 2)
Quarter: 2016Q3

REPORT INFORMATION
  Report Type: Report from Study
  Country: US (occurrence: US)
  Receive Date: 20160208
  Receipt Date: 20160712
  Transmission Date: 20161109
  Serious: Yes (Hospitalization, Other)
  Sender: FDA-Public Use
  Company Number: US-BIOGEN-2014BI014380

PATIENT
  Age: 62 Year
  Sex: Male

DRUGS (2)
  1. AVONEX [Suspect]
     Active Substance: INTERFERON BETA-1A
     Indication: MULTIPLE SCLEROSIS
     Route: 030
     Dates: start: 20000401
  2. AVONEX [Suspect]
     Active Substance: INTERFERON BETA-1A
     Route: 065
     Dates: start: 20141209

REACTIONS (13)
  - Ankle fracture [Not Recovered/Not Resolved]
  - Depression [Recovered/Resolved]
  - Post procedural complication [Recovered/Resolved]
  - Acute myocardial infarction [Recovered/Resolved]
  - Tobacco withdrawal symptoms [Recovered/Resolved]
  - Muscular weakness [Unknown]
  - Personality change [Recovered/Resolved]
  - Hypertension [Not Recovered/Not Resolved]
  - Femur fracture [Not Recovered/Not Resolved]
  - Renal function test abnormal [Unknown]
  - Spinal fracture [Not Recovered/Not Resolved]
  - Hypotonia [Not Recovered/Not Resolved]
  - Anxiety [Recovered/Resolved]

NARRATIVE: CASE EVENT DATE: 201401
